FAERS Safety Report 9835856 (Version 4)
Quarter: 2014Q2

REPORT INFORMATION
  Report Type: Spontaneous
  Country: US (occurrence: US)
  Receive Date: 20140122
  Receipt Date: 20140422
  Transmission Date: 20141212
  Serious: No
  Sender: FDA-Public Use
  Company Number: US-GILEAD-2014-0092734

PATIENT
  Sex: Male

DRUGS (4)
  1. LETAIRIS [Suspect]
     Indication: PULMONARY ARTERIAL HYPERTENSION
     Dosage: 10 MG, QD
     Route: 065
     Dates: start: 20130916
  2. LETAIRIS [Suspect]
     Indication: DRUG ABUSE
  3. REMODULIN [Concomitant]
  4. ADCIRCA [Concomitant]

REACTIONS (2)
  - Infusion site reaction [Unknown]
  - Injection site oedema [Unknown]
